FAERS Safety Report 11994848 (Version 17)
Quarter: 2022Q4

REPORT INFORMATION
  Report Type: Other
  Country: GB (occurrence: GB)
  Receive Date: 20160203
  Receipt Date: 20221007
  Transmission Date: 20230112
  Serious: Yes (Hospitalization, Other)
  Sender: FDA-Public Use
  Company Number: GB-ROCHE-1677596

PATIENT
  Age: 69 Year
  Sex: Female

DRUGS (43)
  1. TRASTUZUMAB [Suspect]
     Active Substance: TRASTUZUMAB
     Indication: Breast cancer metastatic
     Dosage: (LOADING DOSE, 16.6 MG, MAINTENANCE DOSE; DOSE FORM: 230)
     Route: 041
     Dates: start: 20151105, end: 20151105
  2. TRASTUZUMAB [Suspect]
     Active Substance: TRASTUZUMAB
     Dosage: MAINTENANCE DOSE
     Route: 042
     Dates: start: 20151203, end: 20180427
  3. TRASTUZUMAB [Suspect]
     Active Substance: TRASTUZUMAB
     Route: 042
     Dates: start: 20180518, end: 20190327
  4. TRASTUZUMAB [Suspect]
     Active Substance: TRASTUZUMAB
     Route: 042
     Dates: start: 20151203, end: 20180427
  5. TRASTUZUMAB [Suspect]
     Active Substance: TRASTUZUMAB
     Dosage: 336 MG, EVERY 3 WEEK, DOSE FORM: 230, (CUMULATIVE DOSE TO FIRST REACTION:14383.333 MG); DOSAGE FORM:
     Route: 042
     Dates: start: 20180518, end: 20190427
  6. TRASTUZUMAB [Suspect]
     Active Substance: TRASTUZUMAB
     Route: 042
     Dates: start: 20151203, end: 20180327
  7. PERTUZUMAB [Suspect]
     Active Substance: PERTUZUMAB
     Indication: Breast cancer metastatic
     Dosage: LOADING DOSE
     Route: 042
     Dates: start: 20151105, end: 20151105
  8. PERTUZUMAB [Suspect]
     Active Substance: PERTUZUMAB
     Dosage: MAINTENANCE DOSE
     Route: 042
     Dates: start: 20151203
  9. DOCETAXEL [Suspect]
     Active Substance: DOCETAXEL
     Indication: Breast cancer metastatic
     Route: 042
     Dates: start: 20151106, end: 20151106
  10. DOCETAXEL [Suspect]
     Active Substance: DOCETAXEL
     Route: 042
     Dates: start: 20151106, end: 20151106
  11. PACLITAXEL [Suspect]
     Active Substance: PACLITAXEL
     Indication: Breast cancer metastatic
     Dosage: 138 MILLIGRAM, MONTHLY, EVERY 4 WEEKS (CUMULATIVE DOSE: 229.5 MG) (DOSAGE FORM: 120; CUMULATIVE DOSE
     Route: 042
     Dates: start: 20151203, end: 20160203
  12. PACLITAXEL [Suspect]
     Active Substance: PACLITAXEL
     Route: 042
     Dates: start: 20151210
  13. PACLITAXEL [Suspect]
     Active Substance: PACLITAXEL
     Route: 042
     Dates: start: 20160204, end: 20160218
  14. PACLITAXEL [Suspect]
     Active Substance: PACLITAXEL
     Route: 042
     Dates: start: 20160303, end: 20160310
  15. PACLITAXEL [Suspect]
     Active Substance: PACLITAXEL
     Route: 042
     Dates: start: 20151210
  16. PACLITAXEL [Suspect]
     Active Substance: PACLITAXEL
     Dosage: 102 MG, WEEKLY (CUMULATIVE DOSE TO FIRST REACTION: 13.143 MG)
     Route: 042
     Dates: start: 20160303, end: 20160310
  17. PACLITAXEL [Suspect]
     Active Substance: PACLITAXEL
     Dosage: 120 MILLIGRAM, MONTHLY, EVERY 4 WEEKS (34.75 MG CD, 884 MG, 4.92857142 MG; CUMULATIVE) (DOSAGE FORM:
     Route: 042
     Dates: start: 20160204, end: 20160218
  18. PACLITAXEL [Suspect]
     Active Substance: PACLITAXEL
     Dosage: 44.6 MG, EVERY 4 DAYS, 34.75 MG CD, 884 MG, 4.92857142 MG
     Route: 042
     Dates: start: 20151210
  19. PACLITAXEL [Suspect]
     Active Substance: PACLITAXEL
     Dosage: 134 MG, EVERY 4 WEEKS (CUMULATIVE DOSE: 229.5 MG)
     Route: 042
     Dates: start: 20151210
  20. PACLITAXEL [Suspect]
     Active Substance: PACLITAXEL
     Dosage: 125 MG, Q4W (CUMULATIVE DOSE TO FIRST REACTION: 13.143 MG)
     Route: 042
     Dates: start: 20160204, end: 20160218
  21. ASPIRIN [Concomitant]
     Active Substance: ASPIRIN
  22. ASPIRIN [Concomitant]
     Active Substance: ASPIRIN
     Route: 048
     Dates: start: 20170523, end: 20170701
  23. ATORVASTATIN [Concomitant]
     Active Substance: ATORVASTATIN
     Route: 048
     Dates: start: 20170701
  24. CETIRIZINE [Concomitant]
     Active Substance: CETIRIZINE HYDROCHLORIDE
     Indication: Prophylaxis
     Dosage: 1 TABLET AT NIGHT FOR 3 DAYS
     Route: 048
     Dates: start: 20151203
  25. CHLORHEXIDINE GLUCONATE [Concomitant]
     Active Substance: CHLORHEXIDINE GLUCONATE
     Indication: Prophylaxis
     Dosage: MOUTHWASH
     Route: 048
     Dates: start: 20151105
  26. CHLORHEXIDINE [Concomitant]
     Active Substance: CHLORHEXIDINE
     Indication: Prophylaxis
     Dosage: 0.25 DAY (MOUTHWASH)
     Dates: start: 20151105
  27. CHLORHEXIDINE [Concomitant]
     Active Substance: CHLORHEXIDINE
     Dosage: 4(NO UNIT REPORTED) EVERY 1 DAY (MOUTHWASH)
     Route: 048
     Dates: start: 20151105
  28. CLOPIDOGREL [Concomitant]
     Active Substance: CLOPIDOGREL BISULFATE
     Route: 048
     Dates: start: 20170701
  29. DEXAMETHASONE [Concomitant]
     Active Substance: DEXAMETHASONE
     Indication: Prophylaxis
     Route: 048
     Dates: start: 20151105
  30. EZETIMIBE [Concomitant]
     Active Substance: EZETIMIBE
     Route: 048
     Dates: start: 2019
  31. LANSOPRAZOLE [Concomitant]
     Active Substance: LANSOPRAZOLE
     Route: 048
     Dates: start: 20170312
  32. LOPERAMIDE [Concomitant]
     Active Substance: LOPERAMIDE
     Indication: Prophylaxis
     Dosage: 4 TABLET TWICE A DAY FOR 3 DAYS
     Route: 048
     Dates: start: 20151203
  33. LORATADINE [Concomitant]
     Active Substance: LORATADINE
     Route: 048
     Dates: start: 20151119, end: 20151217
  34. METOCLOPRAMIDE [Concomitant]
     Active Substance: METOCLOPRAMIDE
     Indication: Prophylaxis
     Route: 048
     Dates: start: 20151203
  35. RAMIPRIL [Concomitant]
     Active Substance: RAMIPRIL
     Route: 048
     Dates: start: 20170523
  36. RANITIDINE [Concomitant]
     Active Substance: RANITIDINE
     Indication: Prophylaxis
     Dosage: 1 TABLET TWICE A DAY FOR 3 DAYS
     Route: 048
     Dates: start: 20151203
  37. ROSUVASTATIN [Concomitant]
     Active Substance: ROSUVASTATIN
     Route: 048
     Dates: start: 201806, end: 201911
  38. ROSUVASTATIN CALCIUM [Concomitant]
     Active Substance: ROSUVASTATIN CALCIUM
  39. TRAMADOL [Concomitant]
     Active Substance: TRAMADOL
     Indication: Prophylaxis
     Dosage: 50 MG (DOSE FORM: 5)
     Route: 048
     Dates: start: 20151105
  40. TRAMADOL HYDROCHLORIDE [Concomitant]
     Active Substance: TRAMADOL HYDROCHLORIDE
     Indication: Prophylaxis
     Route: 048
     Dates: start: 20151105
  41. TRIMETHOPRIM [Concomitant]
     Active Substance: TRIMETHOPRIM
     Indication: Urinary tract infection
     Dosage: 200 MG, 0.5
     Dates: start: 20151210
  42. TRIMETHOPRIM [Concomitant]
     Active Substance: TRIMETHOPRIM
     Dosage: 400 MG
     Dates: start: 20151210
  43. TRIMETHOPRIM [Concomitant]
     Active Substance: TRIMETHOPRIM
     Dosage: 200 MG, BID
     Dates: start: 20151210

REACTIONS (17)
  - Urinary tract infection [Recovered/Resolved]
  - Urosepsis [Recovered/Resolved]
  - Anaphylactic reaction [Recovered/Resolved]
  - Cystitis noninfective [Recovered/Resolved]
  - Neuropathy peripheral [Recovered/Resolved]
  - Neuropathy peripheral [Recovered/Resolved]
  - Diarrhoea [Recovered/Resolved]
  - Fatigue [Recovered/Resolved]
  - Defaecation urgency [Recovered/Resolved]
  - Palmar erythema [Recovered/Resolved]
  - Tendonitis [Not Recovered/Not Resolved]
  - Mucosal inflammation [Recovered/Resolved]
  - Bacterial test positive [Recovered/Resolved]
  - Tremor [Recovered/Resolved]
  - Hypertension [Recovered/Resolved]
  - Rash [Recovered/Resolved]
  - Malaise [Recovered/Resolved]

NARRATIVE: CASE EVENT DATE: 20151201
